FAERS Safety Report 18528411 (Version 2)
Quarter: 2021Q1

REPORT INFORMATION
  Report Type: Spontaneous
  Country: US (occurrence: US)
  Receive Date: 20201120
  Receipt Date: 20210114
  Transmission Date: 20210419
  Serious: Yes (Hospitalization, Other)
  Sender: FDA-Public Use
  Company Number: US-BAYER-2020-248158

PATIENT
  Age: 59 Year
  Sex: Female
  Weight: 68.03 kg

DRUGS (5)
  1. GADAVIST [Suspect]
     Active Substance: GADOBUTROL
     Indication: IMAGING PROCEDURE
     Dosage: UNK, ONCE
     Route: 042
     Dates: start: 20201113, end: 20201113
  2. VITAMIN D [VITAMIN D NOS] [Concomitant]
     Active Substance: VITAMIN D NOS
  3. PRILOSEC [Concomitant]
     Active Substance: OMEPRAZOLE MAGNESIUM
  4. GADAVIST [Suspect]
     Active Substance: GADOBUTROL
     Indication: CEREBROVASCULAR ACCIDENT
  5. MULTIVITAMIN AND MINERAL SUPPLEMENT [Concomitant]
     Active Substance: MINERALS\VITAMINS

REACTIONS (1)
  - Anaphylactic reaction [Recovered/Resolved]

NARRATIVE: CASE EVENT DATE: 20201113
